FAERS Safety Report 8824943 (Version 2)
Quarter: 2012Q4

REPORT INFORMATION
  Report Type: 
  Country: VE (occurrence: VE)
  Receive Date: 20121004
  Receipt Date: 20121009
  Transmission Date: 20130627
  Serious: Yes (Death, Other)
  Sender: FDA-Public Use
  Company Number: VE-PFIZER INC-2012243638

PATIENT
  Age: 80 Year
  Sex: Female

DRUGS (1)
  1. LIPITOR [Suspect]
     Indication: CATHETER PLACEMENT
     Dosage: 40 mg, 1x/day
     Route: 048
     Dates: start: 200912

REACTIONS (2)
  - Respiratory arrest [Fatal]
  - Pulmonary oedema [Unknown]
